FAERS Safety Report 11169986 (Version 3)
Quarter: 2015Q3

REPORT INFORMATION
  Report Type: Spontaneous
  Country: US (occurrence: US)
  Receive Date: 20150608
  Receipt Date: 20150805
  Transmission Date: 20151125
  Serious: Yes (Hospitalization, Other)
  Sender: FDA-Public Use
  Company Number: US-ROCHE-1588975

PATIENT
  Age: 51 Year
  Sex: Female
  Weight: 75.82 kg

DRUGS (11)
  1. ALBUTEROL. [Concomitant]
     Active Substance: ALBUTEROL
  2. COUMADIN [Concomitant]
     Active Substance: WARFARIN SODIUM
     Route: 048
     Dates: start: 201406
  3. XOLAIR [Suspect]
     Active Substance: OMALIZUMAB
     Indication: ASTHMA
     Route: 058
     Dates: start: 20080719
  4. ZOLPIDEM [Concomitant]
     Active Substance: ZOLPIDEM\ZOLPIDEM TARTRATE
  5. CYCLOBENZAPRINE [Concomitant]
     Active Substance: CYCLOBENZAPRINE
  6. ADVAIR HFA [Concomitant]
     Active Substance: FLUTICASONE PROPIONATE\SALMETEROL XINAFOATE
     Indication: ASTHMA
     Dosage: 250/50
     Route: 065
     Dates: start: 200911
  7. DENAVIR [Concomitant]
     Active Substance: PENCICLOVIR
  8. LISINOPRIL HIDROCLOROTIAZIDA [Concomitant]
     Indication: BLOOD PRESSURE MEASUREMENT
     Dosage: BEFORE OCT/2000
     Route: 048
  9. ALPRAZOLAM. [Concomitant]
     Active Substance: ALPRAZOLAM
  10. FLUTICASONE [Concomitant]
     Active Substance: FLUTICASONE\FLUTICASONE PROPIONATE
     Dosage: BEFORE 2000
     Route: 045
  11. VENTOLIN HFA [Concomitant]
     Active Substance: ALBUTEROL SULFATE
     Indication: ASTHMA
     Route: 065
     Dates: start: 199801

REACTIONS (3)
  - Breast cancer [Not Recovered/Not Resolved]
  - Asthma [Recovered/Resolved]
  - Pulmonary embolism [Recovered/Resolved]

NARRATIVE: CASE EVENT DATE: 201405
